FAERS Safety Report 8042063-0 (Version None)
Quarter: 2012Q1

REPORT INFORMATION
  Report Type: 
  Country: None (occurrence: None)
  Receive Date: 20120112
  Receipt Date: 20111228
  Transmission Date: 20120608
  Serious: Yes (Hospitalization)
  Sender: FDA-Public Use
  Company Number: FR-CELGENEUS-056-21880-11113248

PATIENT
  Sex: Male

DRUGS (25)
  1. BORTEZOMIB [Suspect]
     Dosage: 1.3 MILLIGRAM/SQ. METER
     Route: 065
     Dates: start: 20111104
  2. LOVENOX [Concomitant]
     Indication: THROMBOSIS
     Route: 065
     Dates: start: 20111102
  3. REVLIMID [Suspect]
     Indication: MULTIPLE MYELOMA
     Dosage: 25 MILLIGRAM
     Route: 048
     Dates: start: 20111025
  4. BORTEZOMIB [Suspect]
     Indication: MULTIPLE MYELOMA
     Dosage: 1.3 MILLIGRAM/SQ. METER
     Route: 065
     Dates: start: 20111025
  5. BORTEZOMIB [Suspect]
     Dosage: 1.3 MILLIGRAM/SQ. METER
     Route: 065
     Dates: start: 20111028
  6. AMOXICILLIN TRIHYDRATE [Concomitant]
     Route: 048
     Dates: start: 20111018
  7. DEXAMETHASONE TAB [Suspect]
     Indication: MULTIPLE MYELOMA
     Dosage: 20 MILLIGRAM
     Route: 065
     Dates: start: 20111025
  8. DEXAMETHASONE TAB [Suspect]
     Dosage: 20 MILLIGRAM
     Route: 065
     Dates: start: 20111105
  9. DEXAMETHASONE TAB [Suspect]
     Dosage: 20 MILLIGRAM
     Route: 065
     Dates: start: 20111029
  10. HYDROCORTISONE [Concomitant]
     Dosage: 10 MICROGRAM
     Route: 048
  11. NEXIUM [Concomitant]
     Route: 065
  12. LAMICTAL [Concomitant]
     Route: 065
  13. POLYETHYLENE GLYCOL [Concomitant]
     Indication: CONSTIPATION
     Route: 065
  14. ACUPAN [Concomitant]
     Indication: PAIN
     Route: 065
  15. LOPRESSOR [Concomitant]
     Indication: HYPERTENSION
     Route: 065
  16. VALACYCLOVIR HYDROCHLORIDE [Concomitant]
     Indication: ANTIVIRAL PROPHYLAXIS
     Route: 048
     Dates: start: 20111024
  17. METOPROLOL TARTRATE [Concomitant]
     Indication: HYPERTENSION
     Route: 048
  18. REVLIMID [Suspect]
     Dosage: 25 MILLIGRAM
     Route: 048
     Dates: start: 20111107
  19. REVLIMID [Suspect]
     Dosage: 25 MILLIGRAM
     Route: 048
     Dates: start: 20111031
  20. BACTRIM [Concomitant]
     Route: 048
     Dates: start: 20111024
  21. LEVOTHYROXINE SODIUM [Concomitant]
     Indication: HYPOTHYROIDISM
     Dosage: 100 MICROGRAM
     Route: 048
  22. POTASSIUM CHLORIDE [Concomitant]
     Route: 065
  23. MOVIPREP [Concomitant]
     Indication: CONSTIPATION
     Route: 065
  24. ATORVASTATIN CALCIUM [Concomitant]
     Dosage: 1
     Route: 048
  25. BICARBONATE [Concomitant]
     Route: 065

REACTIONS (2)
  - LUNG DISORDER [None]
  - BACK PAIN [None]
